FAERS Safety Report 7382456-8 (Version None)
Quarter: 2011Q1

REPORT INFORMATION
  Report Type: 
  Country: None (occurrence: None)
  Receive Date: 20110329
  Receipt Date: 20110315
  Transmission Date: 20110831
  Serious: Yes (Other)
  Sender: FDA-Public Use
  Company Number: RU-BAYER-2011-009046

PATIENT
  Age: 40 Year
  Sex: Female

DRUGS (3)
  1. JEANINE [Suspect]
     Dosage: 1 DF, ONCE
     Route: 048
     Dates: start: 20090901, end: 20090901
  2. YARINA [Suspect]
     Dosage: 1 DF, ONCE
     Dates: start: 20100701, end: 20100701
  3. MIRENA [Suspect]
     Indication: MENORRHAGIA
     Dosage: UNK
     Route: 015
     Dates: start: 20110121

REACTIONS (4)
  - HEADACHE [None]
  - PROTHROMBIN TIME PROLONGED [None]
  - SYNCOPE [None]
  - RESPIRATORY TRACT INFECTION [None]
